FAERS Safety Report 4769104-8 (Version None)
Quarter: 2005Q3

REPORT INFORMATION
  Report Type: 
  Country: None (occurrence: None)
  Receive Date: 20050913
  Receipt Date: 20050901
  Transmission Date: 20060218
  Serious: Yes (Other)
  Sender: FDA-Public Use
  Company Number: 2005122988

PATIENT
  Age: 55 Year
  Sex: Male

DRUGS (6)
  1. NIFEDIPINE [Suspect]
     Indication: ILL-DEFINED DISORDER
     Dosage: 30 MG, ORAL
     Route: 048
  2. ALLOPURINOL [Concomitant]
  3. ATACAND [Concomitant]
  4. ATENOLOL [Concomitant]
  5. CYCLOSPORINE [Concomitant]
  6. FUROSEMIDE [Concomitant]

REACTIONS (3)
  - ARTHROPATHY [None]
  - EPISTAXIS [None]
  - PAIN [None]
